FAERS Safety Report 8596611-2 (Version None)
Quarter: 2012Q3

REPORT INFORMATION
  Report Type: 
  Country: None (occurrence: None)
  Receive Date: 20120815
  Receipt Date: 20120808
  Transmission Date: 20120928
  Serious: Yes (Hospitalization)
  Sender: FDA-Public Use
  Company Number: US-US-EMD SERONO, INC.-7153526

PATIENT
  Sex: Female
  Weight: 107 kg

DRUGS (8)
  1. SOLU-MEDROL [Suspect]
     Indication: MULTIPLE SCLEROSIS
  2. VITAMIN D [Concomitant]
     Indication: PRODUCT USED FOR UNKNOWN INDICATION
  3. VITAMIN B COMPLEX CAP [Concomitant]
     Indication: PRODUCT USED FOR UNKNOWN INDICATION
  4. INTERFERON BETA-1A [Suspect]
     Route: 058
  5. FOLIC ACID [Concomitant]
     Indication: PRODUCT USED FOR UNKNOWN INDICATION
  6. NUVARING [Concomitant]
     Indication: CONTRACEPTION
  7. INTERFERON BETA-1A [Suspect]
     Indication: MULTIPLE SCLEROSIS
     Route: 058
     Dates: start: 20120524
  8. PAXIL [Concomitant]
     Indication: PRODUCT USED FOR UNKNOWN INDICATION

REACTIONS (11)
  - DIARRHOEA [None]
  - DIABETES MELLITUS [None]
  - NAUSEA [None]
  - DIZZINESS [None]
  - FATIGUE [None]
  - VOMITING [None]
  - PAIN [None]
  - CHILLS [None]
  - VISION BLURRED [None]
  - HYPERHIDROSIS [None]
  - ABASIA [None]
